FAERS Safety Report 23956182 (Version 1)
Quarter: 2024Q2

REPORT INFORMATION
  Report Type: Spontaneous
  Country: KR (occurrence: KR)
  Receive Date: 20240610
  Receipt Date: 20240610
  Transmission Date: 20240716
  Serious: Yes (Death, Other)
  Sender: FDA-Public Use
  Company Number: KR-PFM-2024-03338

PATIENT

DRUGS (2)
  1. PROPRANOLOL [Suspect]
     Active Substance: PROPRANOLOL HYDROCHLORIDE
     Indication: Haemangioma
     Dosage: UNK
     Route: 065
  2. PREDNISOLONE [Suspect]
     Active Substance: PREDNISOLONE
     Indication: Haemangioma
     Dosage: UNK
     Route: 065

REACTIONS (4)
  - Death [Fatal]
  - Pulmonary haemorrhage [Unknown]
  - Product administered to patient of inappropriate age [Unknown]
  - Off label use [Unknown]
